FAERS Safety Report 17173453 (Version 1)
Quarter: 2019Q4

REPORT INFORMATION
  Report Type: Spontaneous
  Country: BR (occurrence: BR)
  Receive Date: 20191218
  Receipt Date: 20191218
  Transmission Date: 20200122
  Serious: Yes (Other)
  Sender: FDA-Public Use
  Company Number: BR-ABBVIE-19P-020-3199624-00

PATIENT
  Age: 65 Year
  Sex: Female

DRUGS (13)
  1. LIMBITROL [Concomitant]
     Active Substance: AMITRIPTYLINE\CHLORDIAZEPOXIDE
     Indication: ANXIETY
     Dosage: 1 TABLET AT NIGHT; ONGOING
     Route: 048
     Dates: start: 201904
  2. VITAMIN D [Concomitant]
     Active Substance: VITAMIN D NOS
     Indication: SUPPLEMENTATION THERAPY
     Dosage: START DATE: END OF LAST YEAR; STOPPED DUE TO CHEMO; SEE NARRATIVE
     Route: 048
     Dates: start: 2018
  3. DEXILANT [Concomitant]
     Active Substance: DEXLANSOPRAZOLE
     Indication: GASTROOESOPHAGEAL REFLUX DISEASE
     Dosage: 30 MINUTES BEFORE BREAKFAST; START DATE: AROUND 2 MONTHS AGO; ONGOING
     Route: 048
  4. LOSARTAN POTASSIUM. [Concomitant]
     Active Substance: LOSARTAN POTASSIUM
     Indication: BLOOD PRESSURE MANAGEMENT
     Dosage: AFTER BREAKFAST; START DATE: ALMOST 10 YEARS AGO; ONGOING
     Route: 048
  5. DEPAKOTE ER [Suspect]
     Active Substance: DIVALPROEX SODIUM
     Dosage: 1 TABLET AT NIGHT;DOSE INCREASED TO TAB 1 DUE TO MEDICATION GAVE HER MIGRAINE BEFORE CHEMO
     Route: 048
  6. ROSUVASTATIN CALCIUM. [Concomitant]
     Active Substance: ROSUVASTATIN CALCIUM
     Indication: BLOOD CHOLESTEROL ABNORMAL
     Dosage: AT LUNCH OR AFTER LUNCH; START DATE: AROUND 5 YEARS AGO; ONGOING
     Route: 048
  7. DECADRON [Suspect]
     Active Substance: DEXAMETHASONE
     Route: 042
  8. DEXILANT [Concomitant]
     Active Substance: DEXLANSOPRAZOLE
     Indication: GASTRITIS
  9. DECADRON [Suspect]
     Active Substance: DEXAMETHASONE
     Indication: PAIN
     Route: 048
  10. AMLODIPINE BESYLATE. [Concomitant]
     Active Substance: AMLODIPINE BESYLATE
     Indication: BLOOD PRESSURE ABNORMAL
     Dosage: AT NIGHT; ONGOING; SINCE AROUND 4 YEARS
     Route: 048
  11. DEPAKOTE ER [Suspect]
     Active Substance: DIVALPROEX SODIUM
     Indication: MIGRAINE
     Dosage: MORNING/NIGHT; ONGOING; DAILY DOSE: 2 TABLETS
     Route: 048
  12. DEPAKOTE ER [Suspect]
     Active Substance: DIVALPROEX SODIUM
     Dosage: PATIENT STARTED THE TREATMENT WITH DEPAKOTE ER 3 OR 4 YEARS AGO
     Route: 048
  13. PROMESTRIENE [Concomitant]
     Active Substance: PROMESTRIENE
     Indication: VULVOVAGINAL DRYNESS
     Dosage: ONCE OR TWICE A WEEK; ENDED JUN-2019 OR JUL-2019
     Route: 067
     Dates: start: 201711, end: 2019

REACTIONS (6)
  - Off label use [Unknown]
  - Burning sensation [Not Recovered/Not Resolved]
  - Breast cancer [Unknown]
  - Weight increased [Unknown]
  - Inappropriate schedule of product administration [Unknown]
  - Migraine [Unknown]

NARRATIVE: CASE EVENT DATE: 201907
